FAERS Safety Report 18447470 (Version 4)
Quarter: 2025Q1

REPORT INFORMATION
  Report Type: Spontaneous
  Country: US (occurrence: US)
  Receive Date: 20201101
  Receipt Date: 20250206
  Transmission Date: 20250408
  Serious: Yes (Other)
  Sender: SANOFI AVENTIS
  Company Number: US-SANOFI-00336382

PATIENT
  Age: 41 Year
  Sex: Female

DRUGS (11)
  1. LEMTRADA [Suspect]
     Active Substance: ALEMTUZUMAB
     Indication: Multiple sclerosis
     Dosage: 12 MG, QD
     Route: 041
     Dates: start: 20201019, end: 20201021
  2. PROTONIX [Concomitant]
     Active Substance: PANTOPRAZOLE SODIUM
  3. SYNTHROID [Concomitant]
     Active Substance: LEVOTHYROXINE SODIUM
  4. MICROCIDE [Concomitant]
  5. K dur [Concomitant]
  6. METHENAMINE HIPPURATE [Concomitant]
     Active Substance: METHENAMINE HIPPURATE
  7. TOPRAMAC [Concomitant]
  8. BIOTIN [Concomitant]
     Active Substance: BIOTIN
  9. EFFEXOR [Concomitant]
     Active Substance: VENLAFAXINE HYDROCHLORIDE
  10. ZOLPIDEM [Concomitant]
     Active Substance: ZOLPIDEM TARTRATE
  11. ACYCLOVIR [Concomitant]
     Active Substance: ACYCLOVIR

REACTIONS (2)
  - Urinary retention [Unknown]
  - Inappropriate schedule of product administration [Unknown]

NARRATIVE: CASE EVENT DATE: 20201001
